FAERS Safety Report 12521304 (Version 3)
Quarter: 2019Q4

REPORT INFORMATION
  Report Type: Report from Study
  Country: CO (occurrence: CO)
  Receive Date: 20160701
  Receipt Date: 20191224
  Transmission Date: 20200122
  Serious: Yes (Other)
  Sender: FDA-Public Use
  Company Number: CO-JNJFOC-20160623938

PATIENT
  Sex: Female
  Weight: 64 kg

DRUGS (1)
  1. SIMPONI [Suspect]
     Active Substance: GOLIMUMAB
     Indication: RHEUMATOID ARTHRITIS
     Route: 058
     Dates: start: 20150609

REACTIONS (9)
  - Vertigo [Unknown]
  - Malaise [Unknown]
  - Hepatitis B [Recovered/Resolved]
  - Laryngitis [Recovering/Resolving]
  - Chronic gastritis [Recovering/Resolving]
  - Arthralgia [Unknown]
  - Helicobacter infection [Recovering/Resolving]
  - Vomiting [Unknown]
  - Headache [Unknown]

NARRATIVE: CASE EVENT DATE: 201605
